FAERS Safety Report 24041493 (Version 2)
Quarter: 2024Q3

REPORT INFORMATION
  Report Type: Spontaneous
  Country: US (occurrence: US)
  Receive Date: 20240702
  Receipt Date: 20240814
  Transmission Date: 20241016
  Serious: No
  Sender: PFIZER
  Company Number: US-PFIZER INC-PV202400086110

PATIENT
  Age: 65 Year
  Sex: Female

DRUGS (1)
  1. PALBOCICLIB [Suspect]
     Active Substance: PALBOCICLIB
     Indication: Breast cancer female
     Dosage: 75 MG, CYCLIC (DAILY, ON DAYS 1-21, THEN 7 DAYS OFF)
     Route: 048

REACTIONS (2)
  - Neutrophil count decreased [Unknown]
  - Monocyte count decreased [Unknown]
